FAERS Safety Report 5120215-7 (Version None)
Quarter: 2006Q4

REPORT INFORMATION
  Report Type: 
  Country: None (occurrence: None)
  Receive Date: 20061002
  Receipt Date: 20061002
  Transmission Date: 20070319
  Serious: Yes (Life-Threatening)
  Sender: FDA-Public Use
  Company Number: None

PATIENT
  Age: 78 Year
  Sex: Female

DRUGS (10)
  1. METFORMIN HCL [Suspect]
     Indication: DIABETES MELLITUS
     Dosage: 850 MG TID PO
     Route: 048
     Dates: start: 19990702, end: 20060928
  2. ASPIRIN [Concomitant]
  3. ATENOLOL [Concomitant]
  4. ATORVASTATIN CALCIUM [Concomitant]
  5. ESCITALOPRAM [Concomitant]
  6. HEPARIN [Concomitant]
     Route: 058
  7. INSULIN [Concomitant]
     Dosage: SLIDING SCALE
  8. LORATADINE [Concomitant]
  9. OLANZAPINE [Concomitant]
  10. BACTRIM [Concomitant]

REACTIONS (2)
  - BLOOD LACTIC ACID INCREASED [None]
  - RENAL IMPAIRMENT [None]
